FAERS Safety Report 14600182 (Version 1)
Quarter: 2018Q1

REPORT INFORMATION
  Report Type: Report from Study
  Country: RU (occurrence: RU)
  Receive Date: 20180305
  Receipt Date: 20180305
  Transmission Date: 20180509
  Serious: Yes (Other)
  Sender: FDA-Public Use
  Company Number: RU-ALEXION-A201705349

PATIENT
  Age: 0 Day
  Sex: Male
  Weight: 8.3 kg

DRUGS (7)
  1. ASFOTASE ALFA [Suspect]
     Active Substance: ASFOTASE ALFA
     Dosage: 2 MG/KG, TIW
     Route: 058
     Dates: start: 20150523
  2. ASFOTASE ALFA [Suspect]
     Active Substance: ASFOTASE ALFA
     Dosage: 3 MG/KG, TIW
     Route: 065
     Dates: start: 20150524
  3. VITAMIN D3 [Concomitant]
     Active Substance: CHOLECALCIFEROL
     Indication: PRODUCT USED FOR UNKNOWN INDICATION
     Dosage: 1000 IU, QD
     Route: 065
  4. CALCIUM [Concomitant]
     Active Substance: CALCIUM
     Indication: PRODUCT USED FOR UNKNOWN INDICATION
     Route: 065
  5. PYRIDOXINE [Concomitant]
     Active Substance: PYRIDOXINE
     Indication: PRODUCT USED FOR UNKNOWN INDICATION
     Dosage: UNK
     Route: 065
     Dates: start: 201502, end: 201702
  6. ASFOTASE ALFA [Suspect]
     Active Substance: ASFOTASE ALFA
     Indication: HYPOPHOSPHATASIA
     Dosage: 3 MG/KG, TIW
     Route: 058
     Dates: start: 201212
  7. ASFOTASE ALFA [Suspect]
     Active Substance: ASFOTASE ALFA
     Dosage: 3 MG, TIW
     Route: 058
     Dates: start: 201612

REACTIONS (15)
  - Rickets [Not Recovered/Not Resolved]
  - Limb deformity [Not Recovered/Not Resolved]
  - Blood alkaline phosphatase increased [Not Recovered/Not Resolved]
  - Rib deformity [Unknown]
  - Lymphocyte percentage increased [Unknown]
  - Off label use [Unknown]
  - Growth retardation [Not Recovered/Not Resolved]
  - Teething [Recovered/Resolved]
  - Deformity thorax [Not Recovered/Not Resolved]
  - Dysstasia [Unknown]
  - Arthralgia [Unknown]
  - Lymphocyte count decreased [Unknown]
  - Body mass index decreased [Not Recovered/Not Resolved]
  - Mobility decreased [Not Recovered/Not Resolved]
  - Myalgia [Unknown]

NARRATIVE: CASE EVENT DATE: 20141201
